FAERS Safety Report 6252835-0 (Version None)
Quarter: 2009Q2

REPORT INFORMATION
  Report Type: 
  Country: None (occurrence: None)
  Receive Date: 20090629
  Receipt Date: 20090629
  Transmission Date: 20091009
  Serious: Yes (Hospitalization)
  Sender: FDA-Public Use
  Company Number: None

PATIENT
  Age: 24 Year
  Sex: Male

DRUGS (1)
  1. VALPROIC ACID 500MG [Suspect]
     Dosage: VALPROIC ACID 1G TWICE DAILY OTHER
     Route: 050

REACTIONS (3)
  - PANCREATITIS ACUTE [None]
  - STAPHYLOCOCCAL INFECTION [None]
  - URINE OUTPUT DECREASED [None]
